FAERS Safety Report 8108678-6 (Version None)
Quarter: 2012Q1

REPORT INFORMATION
  Report Type: 
  Country: None (occurrence: None)
  Receive Date: 20120202
  Receipt Date: 20120121
  Transmission Date: 20120608
  Serious: Yes (Death)
  Sender: FDA-Public Use
  Company Number: IN-PFIZER INC-2012017774

PATIENT
  Age: 58 Year
  Sex: Male

DRUGS (2)
  1. EPLERENONE [Suspect]
     Indication: CARDIAC FAILURE
     Dosage: 25 MG, 1X/DAY
     Route: 048
     Dates: start: 20101116, end: 20101124
  2. EPLERENONE [Suspect]
     Dosage: 50 MG, 1X/DAY
     Route: 048
     Dates: start: 20101125

REACTIONS (1)
  - DEATH [None]
